FAERS Safety Report 8272769-X (Version None)
Quarter: 2012Q2

REPORT INFORMATION
  Report Type: 
  Country: None (occurrence: None)
  Receive Date: 20120411
  Receipt Date: 20120402
  Transmission Date: 20120825
  Serious: Yes (Hospitalization, Other)
  Sender: FDA-Public Use
  Company Number: US-BIOGENIDEC-2012BI011818

PATIENT
  Age: 22 Year
  Sex: Female

DRUGS (4)
  1. IBUPROFEN [Concomitant]
     Indication: PAIN IN EXTREMITY
  2. TRILEPTAL [Concomitant]
     Indication: CONVULSION
     Dates: end: 20120201
  3. TYSABRI [Suspect]
     Indication: MULTIPLE SCLEROSIS
     Route: 042
     Dates: start: 20110307
  4. LAMICTAL [Concomitant]
     Indication: EPILEPSY
     Route: 048
     Dates: start: 20120201

REACTIONS (4)
  - METRORRHAGIA [None]
  - UNRESPONSIVE TO STIMULI [None]
  - CONVULSION [None]
  - TREMOR [None]
